FAERS Safety Report 23900160 (Version 2)
Quarter: 2024Q3

REPORT INFORMATION
  Report Type: Spontaneous
  Country: JP (occurrence: JP)
  Receive Date: 20240526
  Receipt Date: 20240705
  Transmission Date: 20241017
  Serious: Yes (Other)
  Sender: NOVARTIS
  Company Number: JP-002147023-NVSJ2024JP006119

PATIENT
  Age: 74 Year
  Sex: Female

DRUGS (4)
  1. LUTATHERA [Suspect]
     Active Substance: LUTETIUM OXODOTREOTIDE LU-177
     Indication: Neuroendocrine tumour
     Dosage: 7.4 GBQ
     Route: 042
     Dates: start: 20230727
  2. LUTATHERA [Suspect]
     Active Substance: LUTETIUM OXODOTREOTIDE LU-177
     Dosage: 7.4 GBQ
     Route: 042
     Dates: start: 20231005
  3. LUTATHERA [Suspect]
     Active Substance: LUTETIUM OXODOTREOTIDE LU-177
     Dosage: 7.4 GBQ
     Route: 042
     Dates: start: 20231116
  4. LUTATHERA [Suspect]
     Active Substance: LUTETIUM OXODOTREOTIDE LU-177
     Dosage: 7.4 GBQ
     Route: 042
     Dates: start: 20240111, end: 20240111

REACTIONS (9)
  - Lymphocyte count decreased [Unknown]
  - White blood cell count decreased [Unknown]
  - Haemoglobin decreased [Unknown]
  - Blood potassium decreased [Unknown]
  - Malaise [Unknown]
  - Decreased appetite [Unknown]
  - Constipation [Unknown]
  - Alopecia [Unknown]
  - Inappropriate schedule of product administration [Unknown]
